FAERS Safety Report 4334675-2 (Version None)
Quarter: 2004Q1

REPORT INFORMATION
  Report Type: 
  Country: None (occurrence: None)
  Receive Date: 20040329
  Receipt Date: 20031208
  Transmission Date: 20041129
  Serious: No
  Sender: FDA-Public Use
  Company Number: 03P-163-0244269-00

PATIENT
  Age: 57 Year
  Sex: Female

DRUGS (10)
  1. HUMIRA [Suspect]
     Indication: RHEUMATOID ARTHRITIS
     Dosage: SEE IMAGE
     Route: 058
     Dates: start: 20031028, end: 20031028
  2. HUMIRA [Suspect]
     Indication: RHEUMATOID ARTHRITIS
     Dosage: SEE IMAGE
     Route: 058
     Dates: start: 20031125
  3. NAPROXEN [Concomitant]
  4. LEFLUNOMIDE [Concomitant]
  5. HYDROXYCHLOROQJINE PHOSPHATE [Concomitant]
  6. ATENOLOL [Concomitant]
  7. WATER PILL [Concomitant]
  8. MOMETASONE FUROATE [Concomitant]
  9. CHLOROFENDRAMINE [Concomitant]
  10. OXYCODONE [Concomitant]

REACTIONS (2)
  - SINUSITIS [None]
  - STOMATITIS [None]
